FAERS Safety Report 15517266 (Version 2)
Quarter: 2018Q4

REPORT INFORMATION
  Report Type: Spontaneous
  Country: CH (occurrence: CH)
  Receive Date: 20181017
  Receipt Date: 20181228
  Transmission Date: 20190205
  Serious: Yes (Other)
  Sender: FDA-Public Use
  Company Number: CH-REGENERON PHARMACEUTICALS, INC.-2018-40375

PATIENT

DRUGS (14)
  1. EYLEA [Suspect]
     Active Substance: AFLIBERCEPT
     Indication: NEOVASCULAR AGE-RELATED MACULAR DEGENERATION
     Dosage: 1 DF, ONCE INTO THE LEFT EYE
     Route: 031
     Dates: start: 20170328, end: 20170328
  2. EYLEA [Suspect]
     Active Substance: AFLIBERCEPT
     Dosage: 1 DF, ONCE INTO THE LEFT EYE
     Route: 031
     Dates: start: 20171121, end: 20171121
  3. EYLEA [Suspect]
     Active Substance: AFLIBERCEPT
     Indication: DETACHMENT OF MACULAR RETINAL PIGMENT EPITHELIUM
     Dosage: 1 DF, ONCE INTO THE LEFT EYE
     Route: 031
     Dates: start: 20170606, end: 20170606
  4. EYLEA [Suspect]
     Active Substance: AFLIBERCEPT
     Dosage: 1 DF, ONCE INTO THE LEFT EYE
     Route: 031
     Dates: start: 20170822, end: 20170822
  5. EYLEA [Suspect]
     Active Substance: AFLIBERCEPT
     Dosage: 1 DF, ONCE INTO THE LEFT EYE
     Route: 031
     Dates: start: 20180130, end: 20180130
  6. EYLEA [Suspect]
     Active Substance: AFLIBERCEPT
     Dosage: 1 DF, ONCE INTO THE LEFT EYE
     Route: 031
     Dates: start: 20180306, end: 20180306
  7. EYLEA [Suspect]
     Active Substance: AFLIBERCEPT
     Dosage: 1 DF, ONCE INTO THE LEFT EYE
     Route: 031
     Dates: start: 20180821, end: 20180821
  8. EYLEA [Suspect]
     Active Substance: AFLIBERCEPT
     Dosage: 1 DF, ONCE INTO THE LEFT EYE
     Route: 031
     Dates: start: 20170919, end: 20170919
  9. EYLEA [Suspect]
     Active Substance: AFLIBERCEPT
     Dosage: 1 DF, ONCE INTO THE LEFT EYE
     Route: 031
     Dates: start: 20171219, end: 20171219
  10. EYLEA [Suspect]
     Active Substance: AFLIBERCEPT
     Indication: NEOVASCULAR AGE-RELATED MACULAR DEGENERATION
     Dosage: 1 DF, ONCE INTO THE LEFT EYE
     Route: 031
     Dates: start: 20170502, end: 20170502
  11. EYLEA [Suspect]
     Active Substance: AFLIBERCEPT
     Dosage: 1 DF, ONCE INTO THE LEFT EYE
     Route: 031
     Dates: start: 20170711, end: 20170711
  12. EYLEA [Suspect]
     Active Substance: AFLIBERCEPT
     Dosage: 1 DF, ONCE INTO THE LEFT EYE
     Route: 031
     Dates: start: 20180424, end: 20180424
  13. EYLEA [Suspect]
     Active Substance: AFLIBERCEPT
     Dosage: 1 DF, ONCE INTO THE LEFT EYE
     Route: 031
     Dates: start: 20171017, end: 20171017
  14. LASILIX                            /00032601/ [Concomitant]
     Active Substance: FUROSEMIDE
     Indication: HYPERTENSION

REACTIONS (9)
  - Endophthalmitis [Recovering/Resolving]
  - Vitreal cells [Unknown]
  - Visual acuity reduced [Unknown]
  - Anterior chamber cell [Recovering/Resolving]
  - Endophthalmitis [Unknown]
  - Vitreous floaters [Recovering/Resolving]
  - Anterior chamber disorder [Unknown]
  - Drug intolerance [Unknown]
  - Vision blurred [Unknown]

NARRATIVE: CASE EVENT DATE: 20180424
